FAERS Safety Report 26051159 (Version 1)
Quarter: 2025Q4

REPORT INFORMATION
  Report Type: Report from Study
  Country: CA (occurrence: CA)
  Receive Date: 20251117
  Receipt Date: 20251117
  Transmission Date: 20260117
  Serious: No
  Sender: JOHNSON AND JOHNSON
  Company Number: CA-JNJFOC-20251034666

PATIENT
  Age: 59 Year
  Sex: Male
  Weight: 107 kg

DRUGS (2)
  1. STELARA [Suspect]
     Active Substance: USTEKINUMAB
     Indication: Psoriasis
     Route: 058
     Dates: start: 20210908
  2. STELARA [Suspect]
     Active Substance: USTEKINUMAB

REACTIONS (3)
  - Device defective [Unknown]
  - Underdose [Unknown]
  - Accidental exposure to product [Unknown]

NARRATIVE: CASE EVENT DATE: 20251025
